FAERS Safety Report 21922351 (Version 1)
Quarter: 2023Q1

REPORT INFORMATION
  Report Type: Spontaneous
  Country: FR (occurrence: FR)
  Receive Date: 20230128
  Receipt Date: 20230128
  Transmission Date: 20230417
  Serious: Yes (Other)
  Sender: FDA-Public Use
  Company Number: None

PATIENT
  Age: 61 Year
  Sex: Female

DRUGS (2)
  1. VANCOMYCIN [Suspect]
     Active Substance: VANCOMYCIN
     Indication: Endocarditis
     Dosage: UNK
     Route: 042
     Dates: start: 20221227
  2. OFLOXACIN [Suspect]
     Active Substance: OFLOXACIN
     Indication: Cystitis escherichia
     Dosage: UNK
     Route: 065
     Dates: start: 20230106

REACTIONS (5)
  - Transaminases increased [Recovering/Resolving]
  - Prothrombin time ratio decreased [Recovering/Resolving]
  - Gamma-glutamyltransferase increased [Recovering/Resolving]
  - Pruritus [Recovering/Resolving]
  - Urticaria [Not Recovered/Not Resolved]

NARRATIVE: CASE EVENT DATE: 20230108
